FAERS Safety Report 6781744-3 (Version None)
Quarter: 2010Q2

REPORT INFORMATION
  Report Type: 
  Country: None (occurrence: None)
  Receive Date: 20100621
  Receipt Date: 20100617
  Transmission Date: 20101027
  Serious: Yes (Hospitalization)
  Sender: FDA-Public Use
  Company Number: JP-BRACCO-003522

PATIENT
  Sex: Male

DRUGS (5)
  1. CRESTOR [Suspect]
     Indication: DYSLIPIDAEMIA
     Route: 048
     Dates: start: 20100510, end: 20100510
  2. AMLODIPINE [Concomitant]
     Route: 048
  3. OMNIPAQUE 140 [Concomitant]
     Indication: COMPUTERISED TOMOGRAM
     Route: 042
     Dates: start: 20090520, end: 20090520
  4. IOPAMIDOL [Suspect]
     Indication: ANGINA PECTORIS
     Dosage: 4.4 ML/SEC FOR 17 SECONDS
     Route: 042
     Dates: start: 20100510, end: 20100510
  5. IOPAMIDOL [Suspect]
     Indication: COMPUTERISED TOMOGRAM
     Dosage: 4.4 ML/SEC FOR 17 SECONDS
     Route: 042
     Dates: start: 20100510, end: 20100510

REACTIONS (1)
  - ALTERED STATE OF CONSCIOUSNESS [None]
